FAERS Safety Report 23802704 (Version 1)
Quarter: 2024Q2

REPORT INFORMATION
  Report Type: Spontaneous
  Country: US (occurrence: None)
  Receive Date: 20240501
  Receipt Date: 20240501
  Transmission Date: 20240716
  Serious: No
  Sender: FDA-Public Use
  Company Number: US-Axsome Therapeutics, Inc.-AXS202311-001493

PATIENT
  Sex: Female

DRUGS (6)
  1. SUNOSI [Suspect]
     Active Substance: SOLRIAMFETOL
     Indication: Narcolepsy
     Dosage: ON MED DOC, UNKNOWN STRENGTH/DOSE
  2. ADDERALL [Suspect]
     Active Substance: AMPHETAMINE ASPARTATE\AMPHETAMINE SULFATE\DEXTROAMPHETAMINE SACCHARATE\DEXTROAMPHETAMINE SULFATE
     Indication: Narcolepsy
     Dosage: PER REMS RX
  3. CONCERTA [Suspect]
     Active Substance: METHYLPHENIDATE HYDROCHLORIDE
     Indication: Narcolepsy
     Dosage: ON MED DOC, UNKNOWN STRENGTH/DOSE
  4. RITALIN LA [Suspect]
     Active Substance: METHYLPHENIDATE HYDROCHLORIDE
     Indication: Narcolepsy
     Dosage: ON MED DOC, UNKNOWN STRENGTH/DOSE
  5. PROVIGIL [Suspect]
     Active Substance: MODAFINIL
     Indication: Narcolepsy
     Dosage: ON MED DOC, UNKNOWN STRENGTH/DOSE
  6. CYMBALTA [Concomitant]
     Active Substance: DULOXETINE HYDROCHLORIDE
     Indication: Product used for unknown indication
     Dosage: PER REMS RX

REACTIONS (2)
  - Somnolence [Unknown]
  - Adverse event [Unknown]
